FAERS Safety Report 5135730-X (Version None)
Quarter: 2006Q4

REPORT INFORMATION
  Report Type: 
  Country: None (occurrence: None)
  Receive Date: 20061024
  Receipt Date: 20061024
  Transmission Date: 20070319
  Serious: Yes (Hospitalization, Other)
  Sender: FDA-Public Use
  Company Number: None

PATIENT
  Age: 55 Year
  Sex: Male
  Weight: 98.8842 kg

DRUGS (2)
  1. TRAMADOL HCL [Suspect]
     Indication: JOINT SPRAIN
     Dosage: 1 TO 2 TABLETS  EVERY 4 TO 6 HOURS  PO
     Route: 048
     Dates: start: 20061020, end: 20061022
  2. TRAMADOL HCL [Suspect]
     Indication: PAIN
     Dosage: 1 TO 2 TABLETS  EVERY 4 TO 6 HOURS  PO
     Route: 048
     Dates: start: 20061020, end: 20061022

REACTIONS (4)
  - BLOOD MAGNESIUM DECREASED [None]
  - BLOOD POTASSIUM DECREASED [None]
  - CONVULSION [None]
  - ELECTROCARDIOGRAM ABNORMAL [None]
